FAERS Safety Report 6463606-4 (Version None)
Quarter: 2009Q4

REPORT INFORMATION
  Report Type: 
  Country: None (occurrence: None)
  Receive Date: 20091201
  Receipt Date: 20091113
  Transmission Date: 20100525
  Serious: Yes (Hospitalization, Disabling)
  Sender: FDA-Public Use
  Company Number: JP-ALLERGAN-0915796US

PATIENT
  Age: 79 Year
  Sex: Female

DRUGS (5)
  1. LUMIGAN [Suspect]
     Indication: OCULAR HYPERTENSION
     Dosage: 1 GTT, QD
     Route: 047
     Dates: start: 20091030, end: 20091102
  2. TEARBALANCE [Concomitant]
     Dosage: UNK
     Route: 047
     Dates: start: 20080703, end: 20091106
  3. CRAVIT [Concomitant]
     Dosage: UNK
     Dates: start: 20080703
  4. TIMOPTOL XE [Concomitant]
     Dosage: UNK
     Dates: start: 20080703, end: 20091106
  5. RIZABEN [Concomitant]
     Dosage: UNK
     Dates: start: 20080703, end: 20091106

REACTIONS (1)
  - ULCERATIVE KERATITIS [None]
